FAERS Safety Report 4941527-3 (Version None)
Quarter: 2006Q1

REPORT INFORMATION
  Report Type: 
  Country: None (occurrence: None)
  Receive Date: 20060308
  Receipt Date: 20060228
  Transmission Date: 20060701
  Serious: Yes (Life-Threatening, Hospitalization)
  Sender: FDA-Public Use
  Company Number: 2006030820

PATIENT
  Age: 65 Year
  Sex: Male

DRUGS (3)
  1. PHENYTOIN SODIUM [Suspect]
     Indication: EPILEPSY
     Dosage: ORAL
     Route: 048
     Dates: start: 20050831, end: 20060206
  2. PHENYTOIN SODIUM [Suspect]
     Indication: SUBDURAL HAEMATOMA
     Dosage: ORAL
     Route: 048
     Dates: start: 20050831, end: 20060206
  3. ACETAMINOPHEN [Concomitant]

REACTIONS (2)
  - HAEMATEMESIS [None]
  - PANCYTOPENIA [None]
